FAERS Safety Report 8488811-7 (Version None)
Quarter: 2012Q3

REPORT INFORMATION
  Report Type: 
  Country: None (occurrence: None)
  Receive Date: 20120705
  Receipt Date: 20120627
  Transmission Date: 20120928
  Serious: Yes (Other)
  Sender: FDA-Public Use
  Company Number: US-B.I. PHARMACEUTICALS,INC./RIDGEFIELD-2011-BP-19711BP

PATIENT
  Sex: Male

DRUGS (6)
  1. METFORMIN HCL [Concomitant]
     Indication: DIABETES MELLITUS
  2. AMLODIPINE [Concomitant]
     Indication: CARDIAC DISORDER
  3. LIPITOR [Concomitant]
     Indication: BLOOD CHOLESTEROL INCREASED
  4. LISINOPRIL [Concomitant]
     Indication: CARDIAC DISORDER
  5. PRADAXA [Suspect]
     Indication: ATRIAL FIBRILLATION
     Route: 048
     Dates: start: 20110101
  6. TRADATIN [Concomitant]
     Indication: GLAUCOMA

REACTIONS (4)
  - OEDEMA PERIPHERAL [None]
  - CORONARY ARTERY OCCLUSION [None]
  - NEOPLASM SKIN [None]
  - SKIN DISCOLOURATION [None]
